FAERS Safety Report 9846714 (Version 1)
Quarter: 2013Q4

REPORT INFORMATION
  Report Type: Spontaneous
  Country: US (occurrence: None)
  Receive Date: 20131219
  Receipt Date: 20131219
  Transmission Date: 20140711
  Serious: Yes (Death)
  Sender: FDA-Public Use
  Company Number: 163-20785-13033833

PATIENT
  Age: 85 Year
  Sex: Female

DRUGS (8)
  1. THALOMID [Suspect]
     Indication: PLASMA CELL MYELOMA
     Dosage: 28 IN 28 D
     Route: 048
     Dates: start: 20080407
  2. ALENDRONATE SODIUM [Concomitant]
  3. ANASTROZOLE (ANASTROZOLE) [Concomitant]
  4. ARIMIDEX (ANASTROZOLE) [Concomitant]
  5. BISOPROLOL FUMARATE (BISOPROLOL FUMARATE) [Concomitant]
  6. CALCIUM 600 [Concomitant]
  7. FUROSEMIDE (FUROSEMIDE) [Concomitant]
  8. HYDROCHLOROTHIAZIDE [Concomitant]

REACTIONS (1)
  - Death [None]
